FAERS Safety Report 5215012-8 (Version None)
Quarter: 2007Q1

REPORT INFORMATION
  Report Type: 
  Country: None (occurrence: None)
  Receive Date: 20070122
  Receipt Date: 20070112
  Transmission Date: 20070707
  Serious: Yes (Disabling, Other)
  Sender: FDA-Public Use
  Company Number: US-PFIZER INC-2006090656

PATIENT
  Sex: Female
  Weight: 63.5 kg

DRUGS (3)
  1. LIPITOR [Suspect]
     Indication: BLOOD CHOLESTEROL INCREASED
     Dates: start: 19960101, end: 19970101
  2. HYPNOTICS AND SEDATIVES [Suspect]
     Indication: SEDATION
  3. SYNTHROID [Concomitant]

REACTIONS (5)
  - CARDIAC ARREST [None]
  - CARDIAC PACEMAKER MALFUNCTION [None]
  - HEART RATE INCREASED [None]
  - HEPATOCELLULAR DAMAGE [None]
  - PARALYSIS [None]
